FAERS Safety Report 4791719-1 (Version None)
Quarter: 2005Q4

REPORT INFORMATION
  Report Type: 
  Country: None (occurrence: None)
  Receive Date: 20051007
  Receipt Date: 20050930
  Transmission Date: 20060501
  Serious: Yes (Hospitalization, Other)
  Sender: FDA-Public Use
  Company Number: US-GLAXOSMITHKLINE-A0576603A

PATIENT
  Sex: Female

DRUGS (2)
  1. BEXXAR [Suspect]
     Indication: NON-HODGKIN'S LYMPHOMA
     Route: 042
     Dates: start: 20050927, end: 20050927
  2. NO CONCURRENT MEDICATION [Concomitant]

REACTIONS (2)
  - ADVERSE EVENT [None]
  - TRANSIENT ISCHAEMIC ATTACK [None]
